FAERS Safety Report 19994339 (Version 1)
Quarter: 2021Q4

REPORT INFORMATION
  Report Type: Spontaneous
  Country: GB (occurrence: GB)
  Receive Date: 20211026
  Receipt Date: 20211026
  Transmission Date: 20220304
  Serious: Yes (Other)
  Sender: FDA-Public Use
  Company Number: None

PATIENT
  Age: 61 Year
  Sex: Female
  Weight: 70 kg

DRUGS (9)
  1. AMOXICILLIN [Suspect]
     Active Substance: AMOXICILLIN
     Indication: Product used for unknown indication
     Dosage: 250 MG
     Route: 065
     Dates: start: 20200918
  2. ACETYLCYSTEINE [Concomitant]
     Active Substance: ACETYLCYSTEINE
     Indication: Product used for unknown indication
     Dosage: 1 DF, QD
     Route: 065
     Dates: start: 20210811
  3. ATORVASTATIN [Concomitant]
     Active Substance: ATORVASTATIN
     Indication: Product used for unknown indication
     Dosage: 1 DF, QD
     Route: 065
     Dates: start: 20210408
  4. DOXYCYCLINE [Concomitant]
     Active Substance: DOXYCYCLINE
     Indication: Product used for unknown indication
     Dosage: 1 DF, QD
     Route: 065
     Dates: start: 20210929, end: 20211006
  5. LANSOPRAZOLE [Concomitant]
     Active Substance: LANSOPRAZOLE
     Indication: Product used for unknown indication
     Dosage: 1 DF, QD
     Route: 065
     Dates: start: 20211007
  6. PREDNISOLONE [Concomitant]
     Active Substance: PREDNISOLONE
     Indication: Product used for unknown indication
     Dosage: 6 TABLETS EVERY DAY FOR 3 DAYS AND REDUCE BY 5 MG EVERY 3 DAYS.
     Route: 065
     Dates: start: 20211007, end: 20211011
  7. ALBUTEROL [Concomitant]
     Active Substance: ALBUTEROL
     Indication: Product used for unknown indication
     Dosage: 2 DF, PRN
     Route: 055
     Dates: start: 20210408
  8. OLODATEROL HYDROCHLORIDE\TIOTROPIUM BROMIDE MONOHYDRATE [Concomitant]
     Active Substance: OLODATEROL HYDROCHLORIDE\TIOTROPIUM BROMIDE MONOHYDRATE
     Indication: Product used for unknown indication
     Dosage: 2 DF, QD
     Route: 055
     Dates: start: 20210408
  9. THEICAL D3 [Concomitant]
     Indication: Product used for unknown indication
     Dosage: 1 DF, QD
     Route: 065
     Dates: start: 20211007

REACTIONS (2)
  - Gastrointestinal disorder [Recovered/Resolved]
  - Drug hypersensitivity [Unknown]

NARRATIVE: CASE EVENT DATE: 20211014
